FAERS Safety Report 9527686 (Version 1)
Quarter: 2013Q3

REPORT INFORMATION
  Report Type: Spontaneous
  Country: US (occurrence: None)
  Receive Date: 20130913
  Receipt Date: 20130913
  Transmission Date: 20140515
  Serious: Yes (Hospitalization)
  Sender: FDA-Public Use
  Company Number: None

PATIENT
  Age: 48 Year
  Sex: Female
  Weight: 58.51 kg

DRUGS (1)
  1. ZYCLARA [Suspect]
     Indication: PRECANCEROUS SKIN LESION
     Dosage: APPLIED TO A SURFACE USUALLY THE SKIN
     Dates: start: 20121124, end: 20130104

REACTIONS (7)
  - Arthralgia [None]
  - Syncope [None]
  - Dizziness [None]
  - Atrioventricular block second degree [None]
  - Influenza like illness [None]
  - Urticaria [None]
  - Intervertebral disc protrusion [None]
